FAERS Safety Report 15855735 (Version 1)
Quarter: 2019Q1

REPORT INFORMATION
  Report Type: Spontaneous
  Country: JP (occurrence: JP)
  Receive Date: 20190122
  Receipt Date: 20190122
  Transmission Date: 20190417
  Serious: Yes (Other)
  Sender: FDA-Public Use
  Company Number: JP-GILEAD-2019-0384396

PATIENT
  Weight: 34 kg

DRUGS (2)
  1. SUPACAL [Concomitant]
     Dosage: UNK
     Route: 048
     Dates: start: 2013
  2. HARVONI [Suspect]
     Active Substance: LEDIPASVIR\SOFOSBUVIR
     Indication: HEPATITIS C
     Dosage: UNK
     Route: 048
     Dates: start: 201703, end: 201707

REACTIONS (36)
  - Blood bilirubin abnormal [Unknown]
  - Abdominal pain [Unknown]
  - Viral load decreased [None]
  - Swelling [Unknown]
  - Overdose [Unknown]
  - Cryoglobulinaemia [Unknown]
  - Low density lipoprotein increased [Unknown]
  - Carcinoembryonic antigen increased [Unknown]
  - Globulins increased [Unknown]
  - Oedema [Unknown]
  - Off label use [Unknown]
  - Aspartate aminotransferase abnormal [Unknown]
  - Alopecia [Unknown]
  - Liver disorder [Unknown]
  - Colon cancer [Unknown]
  - Albumin globulin ratio increased [Unknown]
  - Pruritus [Unknown]
  - Treatment noncompliance [Unknown]
  - Collagen disorder [Unknown]
  - White blood cell count increased [Unknown]
  - Blood trypsin increased [Unknown]
  - Tumour marker decreased [Unknown]
  - Complement factor decreased [Unknown]
  - Abdominal discomfort [Unknown]
  - Constipation [Unknown]
  - Headache [Unknown]
  - Blood cholesterol increased [Unknown]
  - Blood albumin decreased [Unknown]
  - Jaundice [Unknown]
  - Nausea [Unknown]
  - Neoplasm malignant [Unknown]
  - Amylase increased [Unknown]
  - Face oedema [Unknown]
  - Proteinuria [Unknown]
  - Unevaluable event [Unknown]
  - Large intestine polyp [Unknown]

NARRATIVE: CASE EVENT DATE: 2018
